FAERS Safety Report 24760743 (Version 1)
Quarter: 2024Q4

REPORT INFORMATION
  Report Type: Spontaneous
  Country: US (occurrence: US)
  Receive Date: 20241220
  Receipt Date: 20241220
  Transmission Date: 20250114
  Serious: Yes (Death, Hospitalization, Other)
  Sender: MERCK
  Company Number: US-009507513-2412USA006158

PATIENT
  Sex: Male

DRUGS (2)
  1. KEYTRUDA [Suspect]
     Active Substance: PEMBROLIZUMAB
     Indication: Bladder cancer
     Dosage: 200 MILLIGRAM, Q3W
     Route: 042
     Dates: start: 20241027
  2. METOPROLOL [Concomitant]
     Active Substance: METOPROLOL

REACTIONS (6)
  - Malignant neoplasm progression [Fatal]
  - Hospitalisation [Unknown]
  - Hospice care [Unknown]
  - Dysphagia [Unknown]
  - Dyspnoea [Unknown]
  - Asthenia [Unknown]

NARRATIVE: CASE EVENT DATE: 20240101
